FAERS Safety Report 5705737-X (Version None)
Quarter: 2008Q2

REPORT INFORMATION
  Report Type: 
  Country: None (occurrence: None)
  Receive Date: 20080415
  Receipt Date: 20080404
  Transmission Date: 20081010
  Serious: Yes (Other)
  Sender: FDA-Public Use
  Company Number: B0515728A

PATIENT
  Age: 76 Year
  Sex: Male

DRUGS (8)
  1. ZOPHREN [Suspect]
     Indication: PREMEDICATION
     Dosage: 8MG SINGLE DOSE
     Route: 042
     Dates: start: 20080129, end: 20080129
  2. SOLU-MEDROL [Suspect]
     Indication: PREMEDICATION
     Dosage: 120MG SINGLE DOSE
     Route: 042
     Dates: start: 20080129, end: 20080129
  3. OMEPRAZOLE [Concomitant]
     Indication: DRUG USE FOR UNKNOWN INDICATION
     Route: 065
  4. COTAREG [Concomitant]
     Indication: DRUG USE FOR UNKNOWN INDICATION
     Route: 065
  5. FORADIL [Concomitant]
     Indication: DRUG USE FOR UNKNOWN INDICATION
     Route: 065
  6. ZADITEN [Concomitant]
     Indication: DRUG USE FOR UNKNOWN INDICATION
     Route: 065
  7. ATARAX [Concomitant]
     Indication: DRUG USE FOR UNKNOWN INDICATION
     Route: 065
  8. AERIUS [Concomitant]
     Indication: DRUG USE FOR UNKNOWN INDICATION
     Route: 065

REACTIONS (5)
  - DYSPNOEA [None]
  - ERYTHEMA [None]
  - FLUSHING [None]
  - SENSE OF OPPRESSION [None]
  - SUFFOCATION FEELING [None]
